FAERS Safety Report 25080881 (Version 1)
Quarter: 2025Q1

REPORT INFORMATION
  Report Type: Spontaneous
  Country: GB (occurrence: GB)
  Receive Date: 20250315
  Receipt Date: 20250315
  Transmission Date: 20250409
  Serious: Yes (Other)
  Sender: ACCORD
  Company Number: None

PATIENT
  Age: 3 Year
  Sex: Male

DRUGS (3)
  1. MONTELUKAST [Suspect]
     Active Substance: MONTELUKAST
     Indication: Asthma
     Dates: start: 20250201, end: 20250228
  2. ALBUTEROL [Concomitant]
     Active Substance: ALBUTEROL
     Indication: Adverse drug reaction
     Dates: start: 20250201, end: 20250228
  3. ALBUTEROL [Concomitant]
     Active Substance: ALBUTEROL
     Indication: Adverse drug reaction

REACTIONS (2)
  - Nightmare [Recovered/Resolved]
  - Anxiety [Recovered/Resolved]

NARRATIVE: CASE EVENT DATE: 20250201
